FAERS Safety Report 24412184 (Version 1)
Quarter: 2024Q4

REPORT INFORMATION
  Report Type: Spontaneous
  Country: US (occurrence: US)
  Receive Date: 20241008
  Receipt Date: 20241008
  Transmission Date: 20250115
  Serious: Yes (Hospitalization, Other)
  Sender: AMGEN
  Company Number: US-AMGEN-USASP2024194674

PATIENT
  Sex: Female

DRUGS (1)
  1. IMDELLTRA [Suspect]
     Active Substance: TARLATAMAB-DLLE
     Indication: Small cell lung cancer extensive stage
     Dosage: 1 MILLIGRAM C1D1 (1MG IV OVER 1 HOUR), 10MG IV OVER 1 HOUR EVERY 2WKS AFTER INITIAL STEP UP DOSING
     Route: 042
     Dates: start: 20240923

REACTIONS (2)
  - Performance status decreased [Unknown]
  - Neurotoxicity [Recovered/Resolved]

NARRATIVE: CASE EVENT DATE: 20240901
